FAERS Safety Report 5024270-4 (Version None)
Quarter: 2006Q2

REPORT INFORMATION
  Report Type: 
  Country: None (occurrence: None)
  Receive Date: 20060607
  Receipt Date: 20060524
  Transmission Date: 20061013
  Serious: Yes (Death)
  Sender: FDA-Public Use
  Company Number: S06-UKI-01999-01

PATIENT
  Age: 84 Year
  Sex: Female
  Weight: 97 kg

DRUGS (9)
  1. CITALOPRAM HYDROBROMIDE [Suspect]
     Dosage: 20 MG BID PO
     Route: 048
     Dates: start: 20051101
  2. CITALOPRAM HYDROBROMIDE [Suspect]
     Dates: end: 20051101
  3. AMITRIPTYLINE HCL [Concomitant]
  4. FERROUS SULFATE TAB [Concomitant]
  5. TEMAZEPAM [Concomitant]
  6. ATENOLOL [Concomitant]
  7. ASCORBIC ACID [Concomitant]
  8. ATORVASTATIN CALCIUM [Concomitant]
  9. OMEPRAZOLE [Concomitant]

REACTIONS (1)
  - SUDDEN DEATH [None]
